FAERS Safety Report 9256768 (Version 1)
Quarter: 2013Q2

REPORT INFORMATION
  Report Type: Spontaneous
  Country: US (occurrence: None)
  Receive Date: 20130423
  Receipt Date: 20130423
  Transmission Date: 20140414
  Serious: Yes (Life-Threatening, Hospitalization, Other)
  Sender: FDA-Public Use
  Company Number: None

PATIENT
  Age: 71 Year
  Sex: Female
  Weight: 68.04 kg

DRUGS (1)
  1. HYDROCODONE/ACETAMINOPHEN [Suspect]
     Dosage: 1 TO 2   4 TO 6 HOURS  PO
     Route: 048
     Dates: start: 20120719, end: 20120723

REACTIONS (4)
  - Abnormal behaviour [None]
  - Mental status changes [None]
  - Personality change [None]
  - Anxiety [None]
